FAERS Safety Report 11939793 (Version 1)
Quarter: 2016Q1

REPORT INFORMATION
  Report Type: Spontaneous
  Country: SE (occurrence: SE)
  Receive Date: 20160122
  Receipt Date: 20160122
  Transmission Date: 20160526
  Serious: Yes (Hospitalization)
  Sender: FDA-Public Use
  Company Number: SE-MEDA-2016010097

PATIENT
  Age: 71 Year
  Sex: Female

DRUGS (1)
  1. ZOLPIDEM 5 MG [Suspect]
     Active Substance: ZOLPIDEM\ZOLPIDEM TARTRATE
     Indication: SUICIDE ATTEMPT

REACTIONS (3)
  - Suicide attempt [None]
  - Oxygen saturation decreased [Unknown]
  - Toxicity to various agents [Unknown]
